FAERS Safety Report 18080358 (Version 1)
Quarter: 2020Q3

REPORT INFORMATION
  Report Type: Spontaneous
  Country: ES (occurrence: ES)
  Receive Date: 20200728
  Receipt Date: 20200728
  Transmission Date: 20201103
  Serious: Yes (Other)
  Sender: FDA-Public Use
  Company Number: ES-GLAXOSMITHKLINE-ES2020GSK138238

PATIENT
  Age: 53 Year
  Sex: Male

DRUGS (1)
  1. EPOPROSTENOL. [Suspect]
     Active Substance: EPOPROSTENOL
     Indication: PRODUCT USED FOR UNKNOWN INDICATION
     Dosage: UNK
     Route: 042

REACTIONS (8)
  - Micrococcus infection [Recovering/Resolving]
  - Pyrexia [Recovering/Resolving]
  - C-reactive protein increased [Recovering/Resolving]
  - Productive cough [Recovering/Resolving]
  - Febrile neutropenia [Recovering/Resolving]
  - Leukopenia [Recovering/Resolving]
  - Device related bacteraemia [Recovering/Resolving]
  - Hepatic steatosis [Recovering/Resolving]
